FAERS Safety Report 11148824 (Version 1)
Quarter: 2015Q2

REPORT INFORMATION
  Report Type: Spontaneous
  Country: US (occurrence: US)
  Receive Date: 20150529
  Receipt Date: 20150529
  Transmission Date: 20150821
  Serious: No
  Sender: FDA-Public Use
  Company Number: US-009507513-1505USA010837

PATIENT
  Age: 26 Year
  Sex: Female
  Weight: 73.16 kg

DRUGS (3)
  1. NEXPLANON [Suspect]
     Active Substance: ETONOGESTREL
     Indication: CONTRACEPTION
     Dosage: 68 MG, ONCE EVERY 3 YEARS
     Route: 059
     Dates: start: 20150331, end: 20150520
  2. CEPHALOSPORINS [Concomitant]
     Active Substance: UNSPECIFIED INGREDIENT
  3. PEDIAZOLE [Concomitant]
     Active Substance: ERYTHROMYCIN ETHYLSUCCINATE\SULFISOXAZOLE ACETYL

REACTIONS (1)
  - Implant site pruritus [Recovering/Resolving]

NARRATIVE: CASE EVENT DATE: 20150507
